FAERS Safety Report 22686285 (Version 4)
Quarter: 2023Q4

REPORT INFORMATION
  Report Type: Report from Study
  Country: CR (occurrence: CR)
  Receive Date: 20230710
  Receipt Date: 20231022
  Transmission Date: 20240109
  Serious: Yes (Other)
  Sender: FDA-Public Use
  Company Number: CR-002147023-NVSC2023CR152691

PATIENT
  Age: 68 Year
  Sex: Female

DRUGS (1)
  1. KISQALI [Suspect]
     Active Substance: RIBOCICLIB
     Indication: Breast cancer
     Dosage: 600 MG, QD
     Route: 048
     Dates: start: 20230204

REACTIONS (14)
  - Vein rupture [Unknown]
  - Renal impairment [Unknown]
  - Breast mass [Unknown]
  - Neck mass [Unknown]
  - Arthralgia [Unknown]
  - Atrophy [Unknown]
  - Movement disorder [Unknown]
  - Electric shock sensation [Unknown]
  - Insomnia [Unknown]
  - Depression [Unknown]
  - Diarrhoea [Recovering/Resolving]
  - Fatigue [Unknown]
  - Back pain [Unknown]
  - Nasopharyngitis [Unknown]

NARRATIVE: CASE EVENT DATE: 20230201
